FAERS Safety Report 25658175 (Version 1)
Quarter: 2025Q3

REPORT INFORMATION
  Report Type: Spontaneous
  Country: US (occurrence: US)
  Receive Date: 20250808
  Receipt Date: 20250808
  Transmission Date: 20251020
  Serious: No
  Sender: SANOFI AVENTIS
  Company Number: US-SANOFI-02613409

PATIENT
  Age: 57 Year
  Sex: Female

DRUGS (1)
  1. DUPIXENT [Suspect]
     Active Substance: DUPILUMAB
     Indication: Eosinophilic oesophagitis
     Dates: start: 20230928

REACTIONS (5)
  - Eosinophilic oesophagitis [Unknown]
  - Inappropriate schedule of product administration [Unknown]
  - Rebound effect [Unknown]
  - Blepharitis [Unknown]
  - Foreign body sensation in eyes [Unknown]
